FAERS Safety Report 7387061-5 (Version None)
Quarter: 2011Q1

REPORT INFORMATION
  Report Type: 
  Country: None (occurrence: None)
  Receive Date: 20110331
  Receipt Date: 20110325
  Transmission Date: 20110831
  Serious: Yes (Hospitalization)
  Sender: FDA-Public Use
  Company Number: US-MERCK-1103USA03561

PATIENT
  Sex: Female

DRUGS (1)
  1. ALDORIL 15 [Suspect]
     Indication: HYPERTENSION
     Route: 048
     Dates: start: 19860301

REACTIONS (4)
  - DECREASED APPETITE [None]
  - WEIGHT DECREASED [None]
  - GASTRIC DISORDER [None]
  - ADVERSE EVENT [None]
